FAERS Safety Report 5699943-0 (Version None)
Quarter: 2008Q2

REPORT INFORMATION
  Report Type: 
  Country: None (occurrence: None)
  Receive Date: 20080410
  Receipt Date: 20080401
  Transmission Date: 20081010
  Serious: Yes (Other)
  Sender: FDA-Public Use
  Company Number: US-MERCK-0804USA00283

PATIENT
  Age: 62 Year
  Sex: Male
  Weight: 76 kg

DRUGS (10)
  1. MELOXICAM [Suspect]
     Route: 065
     Dates: start: 20080307
  2. PREVACID [Suspect]
     Route: 065
     Dates: start: 20080307
  3. ALBUTEROL [Suspect]
     Route: 065
     Dates: start: 20080307
  4. NASONEX [Suspect]
     Route: 065
     Dates: start: 20080307
  5. SINGULAIR [Suspect]
     Route: 048
     Dates: start: 20080307
  6. CHANTIX [Suspect]
     Indication: EX-SMOKER
     Route: 065
     Dates: start: 20080307
  7. PREDNISONE [Suspect]
     Route: 065
     Dates: start: 20080307
  8. SPIRIVA [Suspect]
     Route: 065
     Dates: start: 20080307
  9. ADVAIR HFA [Suspect]
     Route: 065
     Dates: start: 20080307
  10. BENAZEPRIL HYDROCHLORIDE [Suspect]
     Route: 065
     Dates: start: 20080307

REACTIONS (3)
  - AGGRESSION [None]
  - BLOOD PRESSURE INCREASED [None]
  - TREMOR [None]
